FAERS Safety Report 21998620 (Version 5)
Quarter: 2023Q4

REPORT INFORMATION
  Report Type: Spontaneous
  Country: US (occurrence: US)
  Receive Date: 20230216
  Receipt Date: 20231018
  Transmission Date: 20240110
  Serious: Yes (Hospitalization)
  Sender: FDA-Public Use
  Company Number: US-PHARMAESSENTIA-US-2023-PEC-000990

PATIENT
  Sex: Female

DRUGS (2)
  1. BESREMI [Suspect]
     Active Substance: ROPEGINTERFERON ALFA-2B-NJFT
     Indication: Breast cancer female
     Dosage: 50 MCG, Q2W
     Route: 058
     Dates: start: 20221230
  2. BESREMI [Suspect]
     Active Substance: ROPEGINTERFERON ALFA-2B-NJFT
     Dosage: UNK
     Route: 058

REACTIONS (11)
  - Pulmonary embolism [Unknown]
  - Thrombosis [Unknown]
  - Abscess [Unknown]
  - Renal vein compression [Unknown]
  - Lymphatic disorder [Unknown]
  - Splenectomy [Unknown]
  - Taste disorder [Unknown]
  - Off label use [Unknown]
  - Abdominal discomfort [Unknown]
  - Tumour marker increased [Unknown]
  - Nausea [Unknown]
